FAERS Safety Report 5751526-X (Version None)
Quarter: 2008Q2

REPORT INFORMATION
  Report Type: 
  Country: None (occurrence: None)
  Receive Date: 20080527
  Receipt Date: 20080521
  Transmission Date: 20081010
  Serious: Yes (Other)
  Sender: FDA-Public Use
  Company Number: 2008SP008592

PATIENT
  Age: 51 Year
  Sex: Female

DRUGS (6)
  1. PEG-INTRON [Suspect]
     Indication: HEPATITIS C
     Dosage: 120 MCG;QW;SC
     Route: 058
     Dates: start: 20070801
  2. RIBAVIRIN [Suspect]
     Indication: HEPATITIS C
     Dosage: 1000 MG;QD;PO
     Route: 048
     Dates: start: 20070801
  3. CELEXA [Concomitant]
  4. RESTORIL [Concomitant]
  5. XANAX [Concomitant]
  6. HYDROCODONE [Concomitant]

REACTIONS (8)
  - DYSPHAGIA [None]
  - FUNGAL INFECTION [None]
  - HAEMATOCRIT DECREASED [None]
  - HAEMOGLOBIN DECREASED [None]
  - LARYNGITIS [None]
  - SPASMODIC DYSPHONIA [None]
  - VOCAL CORD POLYP [None]
  - WHITE BLOOD CELL COUNT DECREASED [None]
